FAERS Safety Report 9734611 (Version 1)
Quarter: 2013Q4

REPORT INFORMATION
  Report Type: Report from Study
  Country: US (occurrence: US)
  Receive Date: 20131206
  Receipt Date: 20131206
  Transmission Date: 20140711
  Serious: Yes (Other)
  Sender: FDA-Public Use
  Company Number: US-ROCHE-1310319

PATIENT
  Sex: Male
  Weight: 35.8 kg

DRUGS (1)
  1. NUTROPIN AQ [Suspect]
     Indication: HYPOPITUITARISM
     Route: 058
     Dates: end: 2008

REACTIONS (4)
  - Vomiting [Unknown]
  - Abdominal pain [Unknown]
  - Headache [Unknown]
  - Growth retardation [Unknown]
